FAERS Safety Report 23091951 (Version 1)
Quarter: 2023Q4

REPORT INFORMATION
  Report Type: Other
  Country: US (occurrence: None)
  Receive Date: 20231021
  Receipt Date: 20231021
  Transmission Date: 20240110
  Serious: No
  Sender: FDA-Public Use
  Company Number: US-ROCHE-2926344

PATIENT
  Age: 48 Year
  Sex: Male
  Weight: 78.996 kg

DRUGS (6)
  1. OCREVUS [Suspect]
     Active Substance: OCRELIZUMAB
     Indication: Relapsing-remitting multiple sclerosis
     Dosage: ONGOING: YES, 300 MG ON DAY 1 AND DAY 15 THEN SUBSEQUENT DOSE OF 600 MG EVERY 6 MONTHS, ONCE EVERY S
     Route: 042
     Dates: start: 201910
  2. MAGNESIUM [Concomitant]
     Active Substance: MAGNESIUM
     Route: 048
  3. LEVOTHYROXINE [Concomitant]
     Active Substance: LEVOTHYROXINE
     Route: 048
  4. PROPRANOLOL [Concomitant]
     Active Substance: PROPRANOLOL HYDROCHLORIDE
     Indication: Migraine
     Route: 048
  5. TOPIRAMATE [Concomitant]
     Active Substance: TOPIRAMATE
     Indication: Migraine
     Route: 048
  6. FLUOXETINE [Concomitant]
     Active Substance: FLUOXETINE HYDROCHLORIDE
     Indication: Anxiety
     Route: 048

REACTIONS (6)
  - Fatigue [Not Recovered/Not Resolved]
  - Asthenia [Not Recovered/Not Resolved]
  - COVID-19 [Recovered/Resolved]
  - Off label use [Unknown]
  - Multiple sclerosis [Unknown]
  - Nervousness [Unknown]

NARRATIVE: CASE EVENT DATE: 20230729
